FAERS Safety Report 17911457 (Version 1)
Quarter: 2020Q2

REPORT INFORMATION
  Report Type: Spontaneous
  Country: US (occurrence: US)
  Receive Date: 20200618
  Receipt Date: 20200618
  Transmission Date: 20200714
  Serious: Yes (Other)
  Sender: FDA-Public Use
  Company Number: US-GLOBAL BLOOD THERAPEUTICS INC-US-GBT-20-01491

PATIENT
  Age: 27 Year
  Sex: Male

DRUGS (1)
  1. OXBRYTA [Suspect]
     Active Substance: VOXELOTOR
     Indication: SICKLE CELL DISEASE
     Route: 048
     Dates: start: 20200514

REACTIONS (3)
  - Priapism [Recovered/Resolved]
  - Priapism [Recovered/Resolved]
  - Priapism [Recovered/Resolved]

NARRATIVE: CASE EVENT DATE: 20200521
